FAERS Safety Report 17093149 (Version 1)
Quarter: 2019Q4

REPORT INFORMATION
  Report Type: Spontaneous
  Country: GB (occurrence: GB)
  Receive Date: 20191129
  Receipt Date: 20191129
  Transmission Date: 20200122
  Serious: Yes (Hospitalization)
  Sender: FDA-Public Use
  Company Number: GB-TEVA-2019-GB-1142201

PATIENT
  Age: 66 Year
  Sex: Female
  Weight: 76 kg

DRUGS (2)
  1. DOCETAXEL. [Suspect]
     Active Substance: DOCETAXEL
     Indication: SARCOMA UTERUS
     Dosage: 120 MG
     Route: 042
     Dates: start: 20181114, end: 20190118
  2. GEMCITABINE. [Suspect]
     Active Substance: GEMCITABINE
     Indication: SARCOMA UTERUS
     Dosage: 1026 MG
     Route: 042
     Dates: start: 20181106, end: 20190118

REACTIONS (1)
  - Neutropenic sepsis [Not Recovered/Not Resolved]

NARRATIVE: CASE EVENT DATE: 20190122
